FAERS Safety Report 21781187 (Version 1)
Quarter: 2022Q4

REPORT INFORMATION
  Report Type: Spontaneous
  Country: ES (occurrence: None)
  Receive Date: 20221227
  Receipt Date: 20221227
  Transmission Date: 20230113
  Serious: Yes (Hospitalization)
  Sender: FDA-Public Use
  Company Number: 2022A410817

PATIENT
  Age: 73 Year
  Sex: Male

DRUGS (8)
  1. OMEPRAZOLE [Suspect]
     Active Substance: OMEPRAZOLE
     Indication: Product used for unknown indication
     Dosage: 20.0 MG C/24 H
     Route: 048
     Dates: start: 20170921, end: 20220623
  2. IRBESARTAN [Suspect]
     Active Substance: IRBESARTAN
     Indication: Hypertension
     Dosage: 150.0 MG C/24 H
     Route: 048
     Dates: start: 20170927, end: 20220623
  3. METFORMIN [Suspect]
     Active Substance: METFORMIN HYDROCHLORIDE
     Indication: Diabetes mellitus
     Dosage: 1000.0 MG C/12 H
     Route: 048
     Dates: start: 20140114, end: 20220623
  4. ASPIRIN [Concomitant]
     Active Substance: ASPIRIN
     Indication: Cerebrovascular disorder
     Dosage: 100.0 MG DE
     Route: 048
     Dates: start: 20170922
  5. GLUCAGEN HYPOKIT [Concomitant]
     Active Substance: GLUCAGON HYDROCHLORIDE
     Indication: Hypoglycaemia
     Dosage: 1.0 MG
     Route: 030
     Dates: start: 20171102
  6. INSULIN GLARGINE [Concomitant]
     Active Substance: INSULIN GLARGINE
     Indication: Diabetes mellitus
     Dosage: 7.0 UI C/24 H
     Route: 058
     Dates: start: 20170921
  7. ATORVASTATIN [Concomitant]
     Active Substance: ATORVASTATIN
     Indication: Lipid metabolism disorder
     Dosage: 80.0 MG CE
     Route: 048
     Dates: start: 20140114
  8. IBUPROFENO CINFA [Concomitant]
     Indication: Product used for unknown indication
     Dosage: 1200.0 MG C/7 DIAS
     Route: 048
     Dates: start: 20170921

REACTIONS (3)
  - Decreased appetite [Recovered/Resolved]
  - Acute kidney injury [Recovered/Resolved]
  - Diarrhoea [Recovered/Resolved]

NARRATIVE: CASE EVENT DATE: 20220622
